FAERS Safety Report 14204302 (Version 2)
Quarter: 2017Q4

REPORT INFORMATION
  Report Type: Spontaneous
  Country: US (occurrence: US)
  Receive Date: 20171120
  Receipt Date: 20171120
  Transmission Date: 20180321
  Serious: No
  Sender: FDA-Public Use
  Company Number: US-BAYER-2017-222045

PATIENT
  Age: 46 Year
  Sex: Male
  Weight: 83.91 kg

DRUGS (2)
  1. CLARITIN [Suspect]
     Active Substance: LORATADINE
     Indication: NASOPHARYNGITIS
  2. CLARITIN [Suspect]
     Active Substance: LORATADINE
     Indication: HYPERSENSITIVITY
     Dosage: UNK
     Route: 048
     Dates: start: 20171115

REACTIONS (4)
  - Sneezing [Unknown]
  - Feeling abnormal [Unknown]
  - Condition aggravated [None]
  - Drug ineffective [Unknown]

NARRATIVE: CASE EVENT DATE: 20171115
